FAERS Safety Report 8881861 (Version 2)
Quarter: 2013Q2

REPORT INFORMATION
  Report Type: Spontaneous
  Country: JP (occurrence: JP)
  Receive Date: 20121105
  Receipt Date: 20130405
  Transmission Date: 20140414
  Serious: Yes (Other)
  Sender: FDA-Public Use
  Company Number: JP-JNJFOC-20121100065

PATIENT
  Age: 40 Year
  Sex: Male
  Weight: 80 kg

DRUGS (5)
  1. REMICADE [Suspect]
     Indication: PUSTULAR PSORIASIS
     Dosage: SEVENTH INFUSION
     Route: 042
     Dates: start: 20120511
  2. REMICADE [Suspect]
     Indication: PUSTULAR PSORIASIS
     Dosage: SIXTH INFUSION
     Route: 042
     Dates: start: 20111214
  3. REMICADE [Suspect]
     Indication: PUSTULAR PSORIASIS
     Dosage: FIRST INFUSION
     Route: 042
     Dates: start: 20110518
  4. ALLOZYM [Concomitant]
     Indication: HYPERURICAEMIA
     Route: 048
     Dates: start: 20110422
  5. ALMETA [Concomitant]
     Indication: PSORIASIS
     Route: 065
     Dates: start: 20111019

REACTIONS (1)
  - Tuberculosis [Recovered/Resolved]
